FAERS Safety Report 4405181-1 (Version None)
Quarter: 2004Q3

REPORT INFORMATION
  Report Type: 
  Country: None (occurrence: None)
  Receive Date: 20040722
  Receipt Date: 20040722
  Transmission Date: 20050211
  Serious: Yes (Other)
  Sender: FDA-Public Use
  Company Number: None

PATIENT
  Sex: Female
  Weight: 86.1834 kg

DRUGS (2)
  1. PAXIL [Suspect]
     Indication: ANXIETY
     Dosage: 1XDAY 12.5 MG
     Dates: start: 20040621, end: 20040710
  2. PAXIL [Suspect]
     Indication: DEPRESSED MOOD
     Dosage: 1XDAY 12.5 MG
     Dates: start: 20040621, end: 20040710

REACTIONS (5)
  - ARTHRALGIA [None]
  - HYPERSENSITIVITY [None]
  - JOINT SWELLING [None]
  - PAIN IN EXTREMITY [None]
  - PARAESTHESIA [None]
